FAERS Safety Report 11192520 (Version 4)
Quarter: 2017Q2

REPORT INFORMATION
  Report Type: Spontaneous
  Country: US (occurrence: US)
  Receive Date: 20150616
  Receipt Date: 20170519
  Transmission Date: 20170829
  Serious: No
  Sender: FDA-Public Use
  Company Number: US-PFIZER INC-2015197459

PATIENT
  Age: 66 Year
  Sex: Female
  Weight: 41 kg

DRUGS (12)
  1. LISINOPRIL. [Concomitant]
     Active Substance: LISINOPRIL
     Indication: HYPERTENSION
     Dosage: UNK UNK, 2X/DAY (HALF A TABLET)
     Route: 048
  2. ROPINIROLE. [Concomitant]
     Active Substance: ROPINIROLE
     Indication: SPINAL DISORDER
     Dosage: UNK UNK, 2X/DAY (0.25MG, HALF A TABLET AT 8:45PM AND A FULL TABLET AT 10PM)
  3. FENOFIBRATE. [Concomitant]
     Active Substance: FENOFIBRATE
     Dosage: UNK
  4. MORPHINE [Concomitant]
     Active Substance: MORPHINE
     Dosage: UNK UNK, AS NEEDED (QUARTER OF A TABLET AT NIGHT)
  5. ROPINIROLE. [Concomitant]
     Active Substance: ROPINIROLE
     Indication: INSOMNIA
     Dosage: UNK, DAILY IN THE EVENING
  6. ROPINIROLE. [Concomitant]
     Active Substance: ROPINIROLE
     Indication: PAIN
  7. PREMARIN [Concomitant]
     Active Substance: ESTROGENS, CONJUGATED
     Indication: HORMONE LEVEL ABNORMAL
     Dosage: 3 MG, 1X/DAY(IN MORNING)
     Route: 048
  8. LYRICA [Suspect]
     Active Substance: PREGABALIN
     Dosage: 25 MG, 2X/DAY
     Route: 048
     Dates: start: 2015
  9. MORPHINE [Concomitant]
     Active Substance: MORPHINE
     Indication: PAIN
     Dosage: 6 MG, UNK
  10. LYRICA [Suspect]
     Active Substance: PREGABALIN
     Indication: NERVE INJURY
     Dosage: 25 MG, 1X/DAY IN MORNING
     Route: 048
     Dates: start: 2015, end: 2015
  11. CLONIDINE. [Concomitant]
     Active Substance: CLONIDINE
     Indication: HYPERTENSION
     Dosage: UNK UNK, 2X/DAY (HALF TABELT TWICE DAILY)
  12. CLONAZEPAM. [Concomitant]
     Active Substance: CLONAZEPAM
     Indication: INSOMNIA
     Dosage: UNK

REACTIONS (4)
  - Somnolence [Unknown]
  - Insomnia [Unknown]
  - Malaise [Unknown]
  - Nausea [Unknown]
